FAERS Safety Report 4268851-4 (Version None)
Quarter: 2004Q1

REPORT INFORMATION
  Report Type: 
  Country: None (occurrence: None)
  Receive Date: 20040112
  Receipt Date: 20040112
  Transmission Date: 20041129
  Serious: Yes (Other)
  Sender: FDA-Public Use
  Company Number: None

PATIENT
  Age: 51 Year
  Sex: Female
  Weight: 61.2356 kg

DRUGS (3)
  1. LEVAQUIN [Suspect]
     Indication: CYSTITIS
     Dosage: ONE TABLET DAILY ORAL
     Route: 048
     Dates: start: 20031224, end: 20031226
  2. ESTROGEN CREAM [Concomitant]
  3. PYRIDIUM [Concomitant]

REACTIONS (3)
  - ARTHRALGIA [None]
  - GAIT DISTURBANCE [None]
  - MYALGIA [None]
